FAERS Safety Report 12834072 (Version 2)
Quarter: 2016Q4

REPORT INFORMATION
  Report Type: Spontaneous
  Country: US (occurrence: US)
  Receive Date: 20161010
  Receipt Date: 20161101
  Transmission Date: 20170207
  Serious: Yes (Other)
  Sender: FDA-Public Use
  Company Number: US-LPDUSPRD-20160892

PATIENT
  Age: 19 Year
  Sex: Female

DRUGS (3)
  1. NUVIGIL [Concomitant]
     Active Substance: ARMODAFINIL
     Dosage: 50 MG AT HS
     Route: 065
  2. INJECTAFER [Suspect]
     Active Substance: FERRIC CARBOXYMALTOSE
     Dosage: 750 MG IN 100 CC NS
     Route: 042
     Dates: start: 20160526, end: 20160526
  3. MELATONIN [Concomitant]
     Active Substance: MELATONIN
     Dosage: 3 MG AT HS
     Route: 065

REACTIONS (2)
  - Chest pain [Unknown]
  - Throat irritation [Unknown]

NARRATIVE: CASE EVENT DATE: 20160526
